FAERS Safety Report 10706897 (Version 2)
Quarter: 2015Q2

REPORT INFORMATION
  Report Type: Spontaneous
  Country: US (occurrence: US)
  Receive Date: 20150113
  Receipt Date: 20150414
  Transmission Date: 20150821
  Serious: Yes (Death, Other)
  Sender: FDA-Public Use
  Company Number: US-PFIZER INC-2015013497

PATIENT
  Age: 86 Year
  Sex: Female

DRUGS (1)
  1. XALKORI [Suspect]
     Active Substance: CRIZOTINIB
     Dosage: UNK

REACTIONS (2)
  - Death [Fatal]
  - Pulmonary oedema [Unknown]

NARRATIVE: CASE EVENT DATE: 201412
